FAERS Safety Report 6731321-5 (Version None)
Quarter: 2010Q2

REPORT INFORMATION
  Report Type: 
  Country: None (occurrence: None)
  Receive Date: 20100517
  Receipt Date: 20100517
  Transmission Date: 20101027
  Serious: Yes (Other)
  Sender: FDA-Public Use
  Company Number: None

PATIENT
  Age: 41 Year
  Sex: Female
  Weight: 72.5755 kg

DRUGS (2)
  1. CRESTOR [Suspect]
     Indication: BLOOD TRIGLYCERIDES INCREASED
     Dosage: 1 20MG TABLET 1 PO
     Route: 048
  2. CRESTOR [Suspect]
     Indication: HIGH DENSITY LIPOPROTEIN INCREASED
     Dosage: 1 20MG TABLET 1 PO
     Route: 048

REACTIONS (2)
  - MUSCLE DISORDER [None]
  - MYALGIA [None]
